FAERS Safety Report 26124413 (Version 1)
Quarter: 2025Q4

REPORT INFORMATION
  Report Type: Report from Study
  Country: US (occurrence: US)
  Receive Date: 20251205
  Receipt Date: 20251205
  Transmission Date: 20260117
  Serious: No
  Sender: ACADIA PHARMACEUTICALS
  Company Number: US-ACADIA PHARMACEUTICALS INC.-ACA-2025-PIM-012896

PATIENT
  Sex: Male

DRUGS (12)
  1. NUPLAZID [Suspect]
     Active Substance: PIMAVANSERIN TARTRATE
     Indication: Parkinson^s disease
     Dosage: 34 MILLIGRAM, QD
     Route: 048
     Dates: start: 20191031
  2. CARBIDOPA [Concomitant]
     Active Substance: CARBIDOPA
  3. CEFPODOXIME [Concomitant]
     Active Substance: CEFPODOXIME
  4. FENOFIBRATE [Concomitant]
     Active Substance: FENOFIBRATE
  5. MIDODRINE [Concomitant]
     Active Substance: MIDODRINE
  6. MONTELUKAST [Concomitant]
     Active Substance: MONTELUKAST
  7. RIVASTIGMINE [Concomitant]
     Active Substance: RIVASTIGMINE
  8. ROPINIROLE [Concomitant]
     Active Substance: ROPINIROLE
  9. ROSUVASTATIN [Concomitant]
     Active Substance: ROSUVASTATIN
  10. RYTARY [Concomitant]
     Active Substance: CARBIDOPA\LEVODOPA
  11. SODIUM CHLORIDE [Concomitant]
     Active Substance: SODIUM CHLORIDE
  12. ZONISAMIDE [Concomitant]
     Active Substance: ZONISAMIDE

REACTIONS (1)
  - Urinary tract infection [Unknown]
